FAERS Safety Report 19222340 (Version 1)
Quarter: 2021Q2

REPORT INFORMATION
  Report Type: Other
  Country: US (occurrence: US)
  Receive Date: 20210506
  Receipt Date: 20210506
  Transmission Date: 20210717
  Serious: Yes (Hospitalization)
  Sender: FDA-Public Use
  Company Number: US-ROCHE-2822060

PATIENT
  Sex: Male
  Weight: 77.18 kg

DRUGS (3)
  1. RITUXAN [Suspect]
     Active Substance: RITUXIMAB
     Indication: ENCEPHALITIS AUTOIMMUNE
     Dosage: EVERY 6 MONTHS, 2 WEEKS APART
     Route: 042
     Dates: start: 2019
  2. COVID?19 VACCINE NOS. [Concomitant]
     Active Substance: COVID-19 VACCINE NOS
     Dates: start: 202102
  3. COVID?19 VACCINE NOS. [Concomitant]
     Active Substance: COVID-19 VACCINE NOS
     Dates: start: 202103

REACTIONS (3)
  - Off label use [Unknown]
  - Pneumonia bacterial [Unknown]
  - Influenza [Unknown]

NARRATIVE: CASE EVENT DATE: 2019
